FAERS Safety Report 20380731 (Version 3)
Quarter: 2022Q4

REPORT INFORMATION
  Report Type: Spontaneous
  Country: JP (occurrence: JP)
  Receive Date: 20220127
  Receipt Date: 20221007
  Transmission Date: 20230113
  Serious: Yes (Death, Hospitalization, Disabling, Other)
  Sender: FDA-Public Use
  Company Number: JP-CHUGAI-2022000971

PATIENT
  Age: 67 Year
  Sex: Female
  Weight: 85 kg

DRUGS (8)
  1. AVASTIN [Suspect]
     Active Substance: BEVACIZUMAB
     Indication: Breast cancer
     Route: 041
     Dates: start: 20210819, end: 20211216
  2. PACLITAXEL [Suspect]
     Active Substance: PACLITAXEL
     Indication: Breast cancer
     Route: 041
     Dates: start: 20210819, end: 20210902
  3. PACLITAXEL [Suspect]
     Active Substance: PACLITAXEL
     Route: 041
     Dates: start: 20210916, end: 20211014
  4. PACLITAXEL [Suspect]
     Active Substance: PACLITAXEL
     Route: 041
     Dates: start: 20211104, end: 20211202
  5. DOCETAXEL [Suspect]
     Active Substance: DOCETAXEL
     Indication: Breast cancer
     Dosage: UNK
     Route: 041
     Dates: start: 20191028, end: 20200126
  6. PEGFILGRASTIM [Concomitant]
     Active Substance: PEGFILGRASTIM
     Dosage: 3.6 MILLIGRAM, SINGLE
     Route: 058
     Dates: start: 20211119, end: 20211119
  7. FILGRASTIM [Concomitant]
     Active Substance: FILGRASTIM
     Dosage: 75 MICROGRAM, QD
     Route: 058
     Dates: start: 20211028, end: 20211029
  8. DENOSUMAB [Concomitant]
     Active Substance: DENOSUMAB
     Dosage: 120 MILLIGRAM, ONCE/4WEEKS
     Route: 058
     Dates: start: 20211118, end: 20211216

REACTIONS (18)
  - Generalised oedema [Not Recovered/Not Resolved]
  - Drug-induced liver injury [Not Recovered/Not Resolved]
  - Fatigue [Not Recovered/Not Resolved]
  - Hepatic encephalopathy [Unknown]
  - Epistaxis [Unknown]
  - Decreased appetite [Unknown]
  - Vomiting [Unknown]
  - Insomnia [Unknown]
  - Dyspnoea [Unknown]
  - Stomatitis [Unknown]
  - Protein urine [Unknown]
  - Disease progression [Fatal]
  - Ascites [Unknown]
  - Febrile neutropenia [Recovered/Resolved]
  - Neutrophil count decreased [Recovered/Resolved]
  - Alopecia [Unknown]
  - Peripheral sensory neuropathy [Not Recovered/Not Resolved]
  - Hyperammonaemia [Not Recovered/Not Resolved]

NARRATIVE: CASE EVENT DATE: 20210902
